FAERS Safety Report 11559684 (Version 1)
Quarter: 2015Q3

REPORT INFORMATION
  Report Type: Spontaneous
  Country: US (occurrence: US)
  Receive Date: 20150916
  Receipt Date: 20150916
  Transmission Date: 20151125
  Serious: No
  Sender: FDA-Public Use
  Company Number: US-ELI_LILLY_AND_COMPANY-US200808005347

PATIENT
  Age: 71 Year
  Sex: Female

DRUGS (3)
  1. FORTEO [Suspect]
     Active Substance: TERIPARATIDE
     Dosage: UNKNOWN
  2. FORTEO [Suspect]
     Active Substance: TERIPARATIDE
     Dates: start: 2008, end: 20080820
  3. FORTEO [Suspect]
     Active Substance: TERIPARATIDE
     Dates: start: 20080825

REACTIONS (4)
  - Ocular hyperaemia [Recovering/Resolving]
  - Eye irritation [Recovering/Resolving]
  - Eye disorder [Not Recovered/Not Resolved]
  - Eyelid oedema [Recovering/Resolving]

NARRATIVE: CASE EVENT DATE: 20080823
